FAERS Safety Report 7474651-4 (Version None)
Quarter: 2011Q2

REPORT INFORMATION
  Report Type: 
  Country: None (occurrence: None)
  Receive Date: 20110512
  Receipt Date: 20110504
  Transmission Date: 20111010
  Serious: Yes (Other)
  Sender: FDA-Public Use
  Company Number: US-JNJFOC-20110503292

PATIENT
  Sex: Male
  Weight: 77.11 kg

DRUGS (4)
  1. VERAPAMIL [Concomitant]
     Indication: BLOOD PRESSURE
     Route: 048
  2. WATER PILL NOS [Concomitant]
     Indication: BLOOD PRESSURE
     Route: 048
  3. ALTEIS [Concomitant]
     Indication: BLOOD PRESSURE
     Route: 048
  4. LEVAQUIN [Suspect]
     Indication: INFECTION
     Route: 048

REACTIONS (2)
  - LOSS OF CONSCIOUSNESS [None]
  - MUSCLE SPASMS [None]
